FAERS Safety Report 7795248-2 (Version None)
Quarter: 2011Q3

REPORT INFORMATION
  Report Type: 
  Country: None (occurrence: None)
  Receive Date: 20110930
  Receipt Date: 20110909
  Transmission Date: 20111222
  Serious: Yes (Other)
  Sender: FDA-Public Use
  Company Number: JPI-P-008784

PATIENT
  Age: 81 Year
  Sex: Male

DRUGS (6)
  1. PRAMIPEXOLE DIHYDROCHLORIDE [Suspect]
     Indication: RESTLESS LEGS SYNDROME
     Dosage: 2 DOSAGE FORMS (2 DOSAGE FORMS, 1 IN 1 D), ORAL
     Route: 048
  2. XYREM [Suspect]
     Indication: CATAPLEXY
     Dosage: 4.5;4;6 GM (2.25 GM, 2 IN 1 D), ORAL
     Route: 048
     Dates: start: 20090824, end: 20091004
  3. XYREM [Suspect]
     Indication: CATAPLEXY
     Dosage: 4.5;4;6 GM (2.25 GM, 2 IN 1 D), ORAL
     Route: 048
     Dates: start: 20101107, end: 20110309
  4. XYREM [Suspect]
     Indication: CATAPLEXY
     Dosage: 4.5;4;6 GM (2.25 GM, 2 IN 1 D), ORAL
     Route: 048
     Dates: start: 20110311
  5. XYREM [Suspect]
     Indication: CATAPLEXY
     Dosage: 4.5;4;6 GM (2.25 GM, 2 IN 1 D), ORAL
     Route: 048
     Dates: start: 20091005
  6. XYREM [Suspect]
     Indication: CATAPLEXY
     Dosage: 4.5;4;6 GM (2.25 GM, 2 IN 1 D), ORAL
     Route: 048
     Dates: end: 20101106

REACTIONS (13)
  - DIZZINESS [None]
  - DISORIENTATION [None]
  - VERTIGO [None]
  - BLADDER CANCER STAGE III [None]
  - BALANCE DISORDER [None]
  - SOMNOLENCE [None]
  - MUSCLE CONTRACTIONS INVOLUNTARY [None]
  - FATIGUE [None]
  - CONDITION AGGRAVATED [None]
  - DRUG DOSE OMISSION [None]
  - FALL [None]
  - CATAPLEXY [None]
  - UNEVALUABLE EVENT [None]
